FAERS Safety Report 6874254-6 (Version None)
Quarter: 2010Q3

REPORT INFORMATION
  Report Type: 
  Country: None (occurrence: None)
  Receive Date: 20100723
  Receipt Date: 20090828
  Transmission Date: 20110219
  Serious: No
  Sender: FDA-Public Use
  Company Number: US-PFIZER INC-2009210234

PATIENT
  Sex: Female
  Weight: 74.842 kg

DRUGS (5)
  1. CHANTIX [Suspect]
     Indication: SMOKING CESSATION THERAPY
     Dosage: 1 MG, 2X/DAY
     Dates: start: 20070101
  2. XANAX [Concomitant]
     Indication: ANXIETY
     Dosage: 0.5 MG, 1X/DAY
  3. XANAX [Concomitant]
     Indication: VERTIGO
  4. PROZAC [Concomitant]
     Dosage: UNK
  5. VITAMINS [Concomitant]
     Dosage: UNK

REACTIONS (2)
  - ABNORMAL DREAMS [None]
  - DEPRESSION [None]
